FAERS Safety Report 9193375 (Version 3)
Quarter: 2013Q3

REPORT INFORMATION
  Report Type: Spontaneous
  Country: US (occurrence: US)
  Receive Date: 20130327
  Receipt Date: 20130924
  Transmission Date: 20140515
  Serious: No
  Sender: FDA-Public Use
  Company Number: US-009507513-1302USA003554

PATIENT
  Sex: Female

DRUGS (1)
  1. DR. SCHOLL?S ODOR-X SPRAY POWDER [Suspect]
     Indication: PRODUCT USED FOR UNKNOWN INDICATION
     Dosage: UNK, ONCE
     Route: 061
     Dates: start: 20130204

REACTIONS (1)
  - Throat irritation [Not Recovered/Not Resolved]
